FAERS Safety Report 7222804-2 (Version None)
Quarter: 2011Q1

REPORT INFORMATION
  Report Type: 
  Country: None (occurrence: None)
  Receive Date: 20110106
  Receipt Date: 20110106
  Transmission Date: 20110831
  Serious: Yes (Hospitalization)
  Sender: FDA-Public Use
  Company Number: None

PATIENT
  Age: 40 Year
  Sex: Female
  Weight: 77.36 kg

DRUGS (2)
  1. YAZ [Suspect]
     Indication: ACNE
     Dosage: ONCE DAILY PO
     Route: 048
  2. VALTREX [Concomitant]

REACTIONS (1)
  - PULMONARY EMBOLISM [None]
